FAERS Safety Report 7163586-2 (Version None)
Quarter: 2010Q4

REPORT INFORMATION
  Report Type: 
  Country: None (occurrence: None)
  Receive Date: 20101215
  Receipt Date: 20100507
  Transmission Date: 20110411
  Serious: Yes (Other)
  Sender: FDA-Public Use
  Company Number: FR-PFIZER INC-2010035290

PATIENT
  Age: 77 Year
  Sex: Male

DRUGS (6)
  1. LYRICA [Suspect]
     Indication: POLYNEUROPATHY
     Dosage: 75 MG (2 TABLETS), UNK
     Dates: start: 20090506, end: 20100128
  2. LYRICA [Suspect]
     Dosage: 25 AND 50 MG DAILY
     Dates: start: 20090501
  3. ENALAPRIL/LERCANIDIPINE [Concomitant]
     Indication: HYPERTENSION
     Dosage: 10 MG, 1X/DAY
     Route: 048
     Dates: start: 20090623
  4. NOCTRAN 10 [Concomitant]
     Dosage: UNK
     Route: 048
  5. VASTAREL [Concomitant]
     Indication: VERTIGO
     Dosage: UNK
     Route: 048
  6. PANTOPRAZOLE [Concomitant]
     Indication: HIATUS HERNIA

REACTIONS (6)
  - AORTIC VALVE INCOMPETENCE [None]
  - ATRIOVENTRICULAR BLOCK [None]
  - DYSPNOEA EXERTIONAL [None]
  - MITRAL VALVE INCOMPETENCE [None]
  - VENTRICULAR EXTRASYSTOLES [None]
  - VERTIGO [None]
